FAERS Safety Report 13055059 (Version 1)
Quarter: 2016Q4

REPORT INFORMATION
  Report Type: Spontaneous
  Country: OM (occurrence: OM)
  Receive Date: 20161222
  Receipt Date: 20161222
  Transmission Date: 20170207
  Serious: Yes (Hospitalization, Disabling, Other)
  Sender: FDA-Public Use
  Company Number: OM-PFIZER INC-2016591366

PATIENT
  Age: 63 Year
  Sex: Female

DRUGS (6)
  1. METRONIDAZOLE. [Concomitant]
     Active Substance: METRONIDAZOLE
     Dosage: UNK
     Route: 065
  2. SULBACTAM [Concomitant]
     Active Substance: SULBACTAM
     Dosage: UNK
     Route: 065
  3. ADRENALINE [Suspect]
     Active Substance: EPINEPHRINE
     Dosage: 0.02 MICRO/KG/MIN
  4. CEFOPERAZONE [Concomitant]
     Active Substance: CEFOPERAZONE
     Dosage: UNK
     Route: 065
  5. DOPAMINE [Suspect]
     Active Substance: DOPAMINE\DOPAMINE HYDROCHLORIDE
     Dosage: 5 MICRO/KG/MIN
     Route: 065
  6. HEPARIN [Concomitant]
     Active Substance: HEPARIN SODIUM
     Dosage: 1000 UNITS/HOUR
     Route: 065

REACTIONS (2)
  - Dry gangrene [Recovering/Resolving]
  - Gangrene [Recovering/Resolving]
